FAERS Safety Report 9553573 (Version 1)
Quarter: 2013Q3

REPORT INFORMATION
  Report Type: Spontaneous
  Country: US (occurrence: None)
  Receive Date: 20130924
  Receipt Date: 20130924
  Transmission Date: 20140515
  Serious: Yes (Disabling)
  Sender: FDA-Public Use
  Company Number: None

PATIENT
  Age: 46 Year
  Sex: Female
  Weight: 56.7 kg

DRUGS (1)
  1. LEXAPRO [Suspect]
     Indication: DEPRESSION
     Route: 048
     Dates: end: 20130923

REACTIONS (6)
  - Drug dose omission [None]
  - Dizziness [None]
  - Dizziness [None]
  - Wrong technique in drug usage process [None]
  - Impaired driving ability [None]
  - Drug withdrawal syndrome [None]
